FAERS Safety Report 6999758-7 (Version None)
Quarter: 2010Q3

REPORT INFORMATION
  Report Type: 
  Country: None (occurrence: None)
  Receive Date: 20100920
  Receipt Date: 20100510
  Transmission Date: 20110219
  Serious: No
  Sender: FDA-Public Use
  Company Number: US-ASTRAZENECA-2010SE21173

PATIENT
  Age: 50 Year
  Sex: Female
  Weight: 59.4 kg

DRUGS (4)
  1. SEROQUEL [Suspect]
     Route: 048
  2. SEROQUEL [Suspect]
     Route: 048
     Dates: start: 20100501
  3. TRILEPTAL [Concomitant]
  4. LORAZEPAM [Concomitant]

REACTIONS (3)
  - BURNING SENSATION [None]
  - CHILLS [None]
  - MALAISE [None]
